FAERS Safety Report 10956109 (Version 3)
Quarter: 2017Q1

REPORT INFORMATION
  Report Type: Spontaneous
  Country: NO (occurrence: NO)
  Receive Date: 20150304
  Receipt Date: 20170113
  Transmission Date: 20170428
  Serious: Yes (Hospitalization)
  Sender: FDA-Public Use
  Company Number: GAM-053-15-NO

PATIENT
  Age: 34 Year
  Sex: Male
  Weight: 101 kg

DRUGS (10)
  1. SERETIDE [Concomitant]
     Active Substance: FLUTICASONE PROPIONATE\SALMETEROL XINAFOATE
     Indication: CHRONIC OBSTRUCTIVE PULMONARY DISEASE
     Dosage: 50?G/250?G X 2 /DAY
     Route: 055
  2. PNEUMOVAX 23 [Concomitant]
     Active Substance: PNEUMOCOCCAL VACCINE, POLYVALENT 23
     Indication: PRODUCT USED FOR UNKNOWN INDICATION
     Route: 051
     Dates: start: 20141212, end: 20141212
  3. COZAAR COMP. FORTE [Concomitant]
     Active Substance: HYDROCHLOROTHIAZIDE\LOSARTAN POTASSIUM
     Indication: PRODUCT USED FOR UNKNOWN INDICATION
     Dosage: 100 MG / 25 MG, 1+0+0+0
     Route: 048
  4. CALCIGRAN FORTE [Concomitant]
     Indication: PRODUCT USED FOR UNKNOWN INDICATION
     Dosage: 1000 MG / 800 MG X 1
     Route: 048
  5. VENTOLINE [Concomitant]
     Active Substance: ALBUTEROL
     Indication: CHRONIC OBSTRUCTIVE PULMONARY DISEASE
     Dosage: USED INFREQUENTLY
     Route: 055
  6. CETIRIZINE [Concomitant]
     Active Substance: CETIRIZINE HYDROCHLORIDE
     Indication: PRODUCT USED FOR UNKNOWN INDICATION
  7. OCTAGAM IMMUNE GLOBULIN (HUMAN) [Suspect]
     Active Substance: HUMAN IMMUNOGLOBULIN G
     Indication: GRANULOMATOSIS WITH POLYANGIITIS
     Route: 042
     Dates: start: 20150107, end: 20150107
  8. BACTRIM [Concomitant]
     Active Substance: SULFAMETHOXAZOLE\TRIMETHOPRIM
     Indication: PRODUCT USED FOR UNKNOWN INDICATION
     Dates: end: 20141027
  9. LIPITOR [Concomitant]
     Active Substance: ATORVASTATIN CALCIUM
     Indication: HYPERCHOLESTEROLAEMIA
     Dosage: SINCE 27-JAN-2014 DOSE INCREASED FROM 60 TO 80 MG
     Route: 048
  10. PREDNISOLONE. [Concomitant]
     Active Substance: PREDNISOLONE
     Indication: GRANULOMATOSIS WITH POLYANGIITIS
     Dosage: 5 MG, 1+0+0+0
     Route: 048

REACTIONS (11)
  - Heart rate increased [Recovering/Resolving]
  - Frequent bowel movements [Unknown]
  - Dose calculation error [None]
  - Presyncope [Recovering/Resolving]
  - Weight decreased [None]
  - Pulmonary embolism [Recovering/Resolving]
  - Vaccination site swelling [None]
  - Incorrect dose administered [None]
  - Pyrexia [None]
  - Immunodeficiency common variable [None]
  - Chest pain [Recovering/Resolving]

NARRATIVE: CASE EVENT DATE: 20150117
